FAERS Safety Report 20039689 (Version 9)
Quarter: 2024Q2

REPORT INFORMATION
  Report Type: Spontaneous
  Country: US (occurrence: US)
  Receive Date: 20211106
  Receipt Date: 20240610
  Transmission Date: 20240716
  Serious: Yes (Other)
  Sender: FDA-Public Use
  Company Number: US-SA-SAC20211101001328

PATIENT
  Age: 74 Year
  Sex: Female

DRUGS (1)
  1. KEVZARA [Suspect]
     Active Substance: SARILUMAB
     Indication: Rheumatoid arthritis
     Dosage: 200 MG, QOW
     Route: 058
     Dates: start: 20210615

REACTIONS (14)
  - Rheumatoid arthritis [Unknown]
  - Joint swelling [Unknown]
  - Arthralgia [Unknown]
  - Blood pressure increased [Unknown]
  - Amnesia [Unknown]
  - Fatigue [Unknown]
  - Memory impairment [Unknown]
  - Balance disorder [Unknown]
  - Food allergy [Unknown]
  - Wheezing [Unknown]
  - Dyspnoea [Unknown]
  - Joint swelling [Unknown]
  - Arthralgia [Unknown]
  - Onychomycosis [Unknown]

NARRATIVE: CASE EVENT DATE: 20210101
